FAERS Safety Report 7537806-6 (Version None)
Quarter: 2011Q2

REPORT INFORMATION
  Report Type: 
  Country: None (occurrence: None)
  Receive Date: 20110603
  Receipt Date: 20110518
  Transmission Date: 20111010
  Serious: Yes (Hospitalization)
  Sender: FDA-Public Use
  Company Number: 2011MA006051

PATIENT
  Age: 14 Year
  Sex: Male

DRUGS (2)
  1. PREDNISONE [Concomitant]
  2. SULFATRIM [Suspect]
     Indication: PARACOCCIDIOIDES INFECTION
     Dosage: 4 GR;QD
     Dates: start: 20070701, end: 20070701

REACTIONS (10)
  - PYREXIA [None]
  - NEPHROPATHY TOXIC [None]
  - DRUG RASH WITH EOSINOPHILIA AND SYSTEMIC SYMPTOMS [None]
  - SECRETION DISCHARGE [None]
  - SYSTEMIC INFLAMMATORY RESPONSE SYNDROME [None]
  - LYMPHADENOPATHY [None]
  - PARACOCCIDIOIDES INFECTION [None]
  - TREATMENT NONCOMPLIANCE [None]
  - GENERAL PHYSICAL HEALTH DETERIORATION [None]
  - WEIGHT DECREASED [None]
